FAERS Safety Report 18006067 (Version 1)
Quarter: 2020Q3

REPORT INFORMATION
  Report Type: Spontaneous
  Country: CN (occurrence: CN)
  Receive Date: 20200709
  Receipt Date: 20200709
  Transmission Date: 20201103
  Serious: Yes (Hospitalization)
  Sender: FDA-Public Use
  Company Number: CN-BAXTER-2020BAX013785

PATIENT
  Age: 7 Year
  Sex: Female
  Weight: 18.4 kg

DRUGS (16)
  1. 0.9% SODIUM CHLORIDE INJECTION [Suspect]
     Active Substance: SODIUM CHLORIDE
     Dosage: ODANSETRON 3.9 MG + 0.9% NS OF 25 ML
     Route: 042
     Dates: start: 20200611, end: 20200611
  2. 0.9% SODIUM CHLORIDE INJECTION [Suspect]
     Active Substance: SODIUM CHLORIDE
     Dosage: ENDOXAN 780 MG + 0. 9% NS OF 66 ML
     Route: 041
     Dates: start: 20200611, end: 20200612
  3. 0.9% SODIUM CHLORIDE INJECTION [Suspect]
     Active Substance: SODIUM CHLORIDE
     Dosage: DOE RE?INTRODUCED, VINCRISTINE + 0. 9% NS
     Route: 042
     Dates: start: 202006
  4. 0.9% SODIUM CHLORIDE INJECTION [Suspect]
     Active Substance: SODIUM CHLORIDE
     Dosage: DOSE RE?INTRODUCED, ENDOXAN + 0.9% NS
     Route: 041
     Dates: start: 202006
  5. 0.9% SODIUM CHLORIDE INJECTION [Suspect]
     Active Substance: SODIUM CHLORIDE
     Dosage: DOSE RE?INTRODUCED, NUOXIN + 0. 9% NS
     Route: 041
     Dates: start: 202006
  6. ONDANSETRON HYDROCHLORIDE. [Suspect]
     Active Substance: ONDANSETRON HYDROCHLORIDE
     Indication: ANTIEMETIC SUPPORTIVE CARE
     Dosage: ONDANSETRON 3.9 MG + 0.9% NS 25 ML, GIVEN 30 MINUTES
     Route: 042
     Dates: start: 20200611, end: 20200612
  7. 0.9% SODIUM CHLORIDE INJECTION [Suspect]
     Active Substance: SODIUM CHLORIDE
     Dosage: DOSE RE?INTRODUCED, ONDANSETRON + 0.9% NS
     Route: 042
     Dates: start: 202006
  8. ENDOXAN [Suspect]
     Active Substance: CYCLOPHOSPHAMIDE
     Dosage: DOSE RE?INTRODUCTION, ENDOXAN + 0.9 % NS
     Route: 041
     Dates: start: 202006
  9. VINCRISTINE SULFATE. [Suspect]
     Active Substance: VINCRISTINE SULFATE
     Dosage: DOSE RE?INTRODUCTION, VINCRISTINE SULFATE + 0. 9% NS
     Route: 042
     Dates: start: 202006
  10. ONDANSETRON HYDROCHLORIDE. [Suspect]
     Active Substance: ONDANSETRON HYDROCHLORIDE
     Dosage: DOSE RE?INTRODUCTION, ONDANSETRON + 0.9% NS
     Route: 042
     Dates: start: 202006
  11. 0.9% SODIUM CHLORIDE INJECTION [Suspect]
     Active Substance: SODIUM CHLORIDE
     Dosage: NUOXIN 29 MG + 0. 9% NS 156 ML
     Route: 041
     Dates: start: 20200611, end: 20200611
  12. 0.9% SODIUM CHLORIDE INJECTION [Suspect]
     Active Substance: SODIUM CHLORIDE
     Indication: MEDICATION DILUTION
     Dosage: VINCRISTINE 1. 2 MG + 0. 9% NS OF 20 ML
     Route: 042
     Dates: start: 20200611, end: 20200611
  13. NUOXIN [Suspect]
     Active Substance: CISPLATIN
     Indication: MEDULLOBLASTOMA
     Dosage: NUOXIN 29 MG + 0. 9% NS OF 156 ML
     Route: 041
     Dates: start: 20200611, end: 20200611
  14. NUOXIN [Suspect]
     Active Substance: CISPLATIN
     Dosage: DOSE RE?INTRODUCTION, NUOXIN + 0. 9% NS
     Route: 041
     Dates: start: 202006
  15. ENDOXAN [Suspect]
     Active Substance: CYCLOPHOSPHAMIDE
     Indication: MEDULLOBLASTOMA
     Dosage: ENDOXAN + 0.9 % NS OF 66 ML
     Route: 041
     Dates: start: 20200611, end: 20200612
  16. VINCRISTINE SULFATE. [Suspect]
     Active Substance: VINCRISTINE SULFATE
     Indication: MEDULLOBLASTOMA
     Dosage: VINCRISTINE SULFATE OF 1.2 MG + 0. 9% NS OF 20 ML
     Route: 042
     Dates: start: 20200611, end: 20200611

REACTIONS (1)
  - Pancytopenia [Recovering/Resolving]

NARRATIVE: CASE EVENT DATE: 20200618
